FAERS Safety Report 5908757-5 (Version None)
Quarter: 2008Q3

REPORT INFORMATION
  Report Type: 
  Country: None (occurrence: None)
  Receive Date: 20080929
  Receipt Date: 20080916
  Transmission Date: 20090109
  Serious: Yes (Hospitalization)
  Sender: FDA-Public Use
  Company Number: 237368J08USA

PATIENT
  Age: 28 Year
  Sex: Female

DRUGS (4)
  1. REBIF [Suspect]
     Indication: MULTIPLE SCLEROSIS
     Dosage: 44 MCG, 3 IN 1 WEEKS, SUBCUTANEOUS
     Route: 058
     Dates: start: 20080523
  2. THORAZINE [Concomitant]
  3. LUNESTA [Concomitant]
  4. MELATONIN (MELATONIN) [Concomitant]

REACTIONS (2)
  - ANXIETY [None]
  - DEPRESSION [None]
